FAERS Safety Report 13677427 (Version 1)
Quarter: 2017Q2

REPORT INFORMATION
  Report Type: Spontaneous
  Country: US (occurrence: US)
  Receive Date: 20170621
  Receipt Date: 20170621
  Transmission Date: 20170830
  Serious: Yes (Life-Threatening, Hospitalization, Disabling, Other)
  Sender: FDA-Public Use
  Company Number: None

PATIENT
  Age: 50 Year
  Sex: Male
  Weight: 85.5 kg

DRUGS (7)
  1. ADDERALL [Concomitant]
     Active Substance: AMPHETAMINE ASPARTATE\AMPHETAMINE SULFATE\DEXTROAMPHETAMINE SACCHARATE\DEXTROAMPHETAMINE SULFATE
  2. CLONZEPAM [Suspect]
     Active Substance: CLONAZEPAM
     Indication: ANXIETY DISORDER
     Dosage: ?          QUANTITY:30 TABLET(S);?
     Route: 048
  3. MELATONIN [Concomitant]
     Active Substance: MELATONIN
  4. OMEGA 3 FATTY ACIDS [Concomitant]
     Active Substance: OMEGA-3 FATTY ACIDS
  5. VALIUM [Concomitant]
     Active Substance: DIAZEPAM
  6. MULTIVITAMIN [Concomitant]
     Active Substance: VITAMINS
  7. MAGANESIUM [Concomitant]

REACTIONS (4)
  - Agoraphobia [None]
  - Drug withdrawal syndrome [None]
  - Job dissatisfaction [None]
  - Cerebral disorder [None]

NARRATIVE: CASE EVENT DATE: 20170621
